FAERS Safety Report 8446100-0 (Version None)
Quarter: 2012Q2

REPORT INFORMATION
  Report Type: 
  Country: None (occurrence: None)
  Receive Date: 20120618
  Receipt Date: 20120613
  Transmission Date: 20120825
  Serious: Yes (Hospitalization, Other)
  Sender: FDA-Public Use
  Company Number: US-ABBOTT-12P-163-0945663-00

PATIENT
  Sex: Male
  Weight: 79.904 kg

DRUGS (1)
  1. ANDROGEL [Suspect]
     Indication: BLOOD TESTOSTERONE DECREASED
     Dates: start: 20030101

REACTIONS (5)
  - HAEMATOCHEZIA [None]
  - ABDOMINAL PAIN [None]
  - MESENTERIC ARTERY THROMBOSIS [None]
  - ALOPECIA [None]
  - INTESTINAL RESECTION [None]
